FAERS Safety Report 15787312 (Version 1)
Quarter: 2019Q1

REPORT INFORMATION
  Report Type: Other
  Country: US (occurrence: US)
  Receive Date: 20190103
  Receipt Date: 20190103
  Transmission Date: 20190417
  Serious: Yes (Hospitalization, Other)
  Sender: FDA-Public Use
  Company Number: US-SERVIER PHARMACEUTICALS LLC-2060818

PATIENT
  Age: 22 Year
  Sex: Male

DRUGS (1)
  1. ONCASPAR [Suspect]
     Active Substance: PEGASPARGASE
     Indication: ACUTE LYMPHOCYTIC LEUKAEMIA
     Route: 065
     Dates: start: 2015

REACTIONS (4)
  - Superior sagittal sinus thrombosis [Recovered/Resolved]
  - Haemorrhagic cerebral infarction [Recovered/Resolved]
  - Hypofibrinogenaemia [Recovered/Resolved]
  - Antithrombin III decreased [Recovered/Resolved]

NARRATIVE: CASE EVENT DATE: 2015
